FAERS Safety Report 6420702-5 (Version None)
Quarter: 2009Q4

REPORT INFORMATION
  Report Type: 
  Country: None (occurrence: None)
  Receive Date: 20091027
  Receipt Date: 20050317
  Transmission Date: 20100525
  Serious: Yes (Other)
  Sender: FDA-Public Use
  Company Number: 2009009154

PATIENT
  Age: 34 Year
  Sex: Male
  Weight: 81.6475 kg

DRUGS (2)
  1. ACTIQ [Suspect]
     Indication: MIGRAINE
     Dosage: 3200 MCG (1600 MCG, 2 IN 1 D), BU
     Route: 002
     Dates: start: 19970101
  2. OXYCONTIN (OXYCONTIN HYDROCHLORIDE) [Concomitant]

REACTIONS (9)
  - BRAIN INJURY [None]
  - CEREBROVASCULAR DISORDER [None]
  - CONTRAINDICATION TO MEDICAL TREATMENT [None]
  - DRUG PRESCRIBING ERROR [None]
  - DYSPNOEA [None]
  - FATIGUE [None]
  - HYPOTHALAMO-PITUITARY DISORDER [None]
  - LENNOX-GASTAUT SYNDROME [None]
  - MEDICATION ERROR [None]
